FAERS Safety Report 21332524 (Version 1)
Quarter: 2022Q3

REPORT INFORMATION
  Report Type: Spontaneous
  Country: US (occurrence: US)
  Receive Date: 20220914
  Receipt Date: 20220914
  Transmission Date: 20221027
  Serious: Yes (Other)
  Sender: FDA-Public Use
  Company Number: US-drreddys-SPO/USA/22/0154279

PATIENT
  Age: 20 Year
  Sex: Male

DRUGS (11)
  1. RISPERIDONE [Suspect]
     Active Substance: RISPERIDONE
     Indication: Schizophrenia
     Dosage: DOSE ABOVE 4 MG
     Dates: start: 201906, end: 201906
  2. RISPERIDONE [Suspect]
     Active Substance: RISPERIDONE
     Dates: start: 2019, end: 201906
  3. LEVOTHYROXINE SODIUM [Concomitant]
     Active Substance: LEVOTHYROXINE SODIUM
     Indication: Hypothyroidism
  4. LORAZEPAM [Concomitant]
     Active Substance: LORAZEPAM
     Indication: Catatonia
     Dates: start: 201902, end: 201902
  5. LORAZEPAM [Concomitant]
     Active Substance: LORAZEPAM
     Indication: Aggression
     Dates: start: 201903, end: 201903
  6. LORAZEPAM [Concomitant]
     Active Substance: LORAZEPAM
     Dates: start: 201901, end: 201902
  7. LORAZEPAM [Concomitant]
     Active Substance: LORAZEPAM
     Dates: start: 201903
  8. LORAZEPAM [Concomitant]
     Active Substance: LORAZEPAM
     Dates: start: 201902, end: 201903
  9. LORAZEPAM [Concomitant]
     Active Substance: LORAZEPAM
     Dates: start: 201901, end: 201901
  10. LORAZEPAM [Concomitant]
     Active Substance: LORAZEPAM
     Dates: start: 201902, end: 201902
  11. LORAZEPAM [Concomitant]
     Active Substance: LORAZEPAM
     Dates: start: 201902, end: 201902

REACTIONS (3)
  - Drug intolerance [Recovered/Resolved]
  - Dystonia [Unknown]
  - Treatment failure [Unknown]

NARRATIVE: CASE EVENT DATE: 20190601
